FAERS Safety Report 8540302-0 (Version None)
Quarter: 2012Q3

REPORT INFORMATION
  Report Type: 
  Country: None (occurrence: None)
  Receive Date: 20120726
  Receipt Date: 20120717
  Transmission Date: 20120928
  Serious: Yes (Other)
  Sender: FDA-Public Use
  Company Number: CH-ROCHE-1089349

PATIENT
  Age: 62 Year
  Sex: Female
  Weight: 61 kg

DRUGS (7)
  1. INCIVO [Suspect]
     Indication: CHRONIC HEPATITIS
     Dosage: DRUG WITHDRAWN
     Route: 048
     Dates: start: 20120313, end: 20120601
  2. PEGASYS [Suspect]
     Indication: CHRONIC HEPATITIS
  3. COPEGUS [Suspect]
     Indication: CHRONIC HEPATITIS
     Dosage: DOSE REDUCED.
     Route: 048
     Dates: start: 20120313
  4. COPEGUS [Suspect]
  5. COPEGUS [Suspect]
     Dates: start: 20120619
  6. INCIVO [Suspect]
     Indication: HEPATITIS VIRAL
  7. PEGASYS [Suspect]
     Indication: HEPATITIS VIRAL
     Dosage: DOSE NOT CHANGED
     Route: 058
     Dates: start: 20120313

REACTIONS (3)
  - PANNICULITIS [None]
  - PANCREATITIS [None]
  - HAEMOLYTIC ANAEMIA [None]
